FAERS Safety Report 20663524 (Version 2)
Quarter: 2022Q2

REPORT INFORMATION
  Report Type: Other
  Country: US (occurrence: None)
  Receive Date: 20220401
  Receipt Date: 20220517
  Transmission Date: 20220720
  Serious: Yes (Death, Other)
  Sender: FDA-Public Use
  Company Number: US-ROCHE-2746813

PATIENT
  Age: 63 Year
  Sex: Female
  Weight: 46.762 kg

DRUGS (27)
  1. OCREVUS [Suspect]
     Active Substance: OCRELIZUMAB
     Indication: Relapsing-remitting multiple sclerosis
     Dosage: INFUSE 20 ML (600 MG) IV EVERY 6 MONTHS ? DOT: 07/DEC/2017, 26/DEC/2017, 09/JUL/2019, 09/JAN/2020, 1
     Route: 042
     Dates: start: 2017, end: 20210816
  2. OCREVUS [Suspect]
     Active Substance: OCRELIZUMAB
     Dosage: INFUSE 300MG DAY 1, THEN 300MG DAY 2
     Route: 042
     Dates: start: 20171207, end: 20210816
  3. OCREVUS [Suspect]
     Active Substance: OCRELIZUMAB
     Route: 042
     Dates: start: 201712
  4. ATOMOXETINE [Concomitant]
     Active Substance: ATOMOXETINE
     Route: 048
  5. AZELASTINE [Concomitant]
     Active Substance: AZELASTINE
     Dosage: 137 MCG?NASAL SPRAY
     Route: 045
  6. DENTAGEL (UNITED STATES) [Concomitant]
     Dosage: GEL 1.1 %
  7. ESTRACE [Concomitant]
     Active Substance: ESTRADIOL
     Route: 048
  8. PREMARIN [Concomitant]
     Active Substance: ESTROGENS, CONJUGATED
     Dosage: VAGINAL CREAM?2 NIGHT S PER WEEK
  9. FLUOXETINE [Concomitant]
     Active Substance: FLUOXETINE HYDROCHLORIDE
     Dosage: 2 CAPSULE BY MOUTH DAILY.
     Route: 048
  10. GABAPENTIN [Concomitant]
     Active Substance: GABAPENTIN
     Dosage: TAKE 1200 MG IN THE AM 1200 MG AT 11 AM AND 1200 MG HS
     Route: 048
  11. ATROVENT [Concomitant]
     Active Substance: IPRATROPIUM BROMIDE
     Dosage: 0.03 % NASAL SPRAY?USE 1 SPRAY IN EACH NOSTRIL 4 TIME A DAY.
  12. VIOKACE [Concomitant]
     Active Substance: PANCRELIPASE AMYLASE\PANCRELIPASE LIPASE\PANCRELIPASE PROTEASE
     Dosage: NG TUBE ROUTE AS NEEDED.
  13. MOVANTIK [Concomitant]
     Active Substance: NALOXEGOL OXALATE
     Route: 048
  14. NARCAN [Concomitant]
     Active Substance: NALOXONE HYDROCHLORIDE
     Dosage: GIVEN 1 SPRAY IN ONE NOSTRIL IF OPOID OVERDOSE SUSPECTED. IF NO RESPONSE IN 3 MINUTES, REPEAT DOSE I
  15. PRILOSEC [Concomitant]
     Active Substance: OMEPRAZOLE MAGNESIUM
     Route: 048
  16. MIRAPEX [Concomitant]
     Active Substance: PRAMIPEXOLE DIHYDROCHLORIDE
     Route: 048
  17. PHENERGAN [Concomitant]
     Active Substance: PROMETHAZINE HYDROCHLORIDE
     Indication: Nausea
     Route: 048
  18. MAXALT-MLT [Concomitant]
     Active Substance: RIZATRIPTAN BENZOATE
     Indication: Headache
     Dosage: DISINTEGRATING TAB?TAKE AT ONSET OF HEADACHE
     Route: 048
  19. SALINE [Concomitant]
     Active Substance: SODIUM CHLORIDE
     Dosage: NOSE?0.65 % NASAL SPRAY
  20. VALTREX [Concomitant]
     Active Substance: VALACYCLOVIR HYDROCHLORIDE
     Route: 048
  21. VALTREX [Concomitant]
     Active Substance: VALACYCLOVIR HYDROCHLORIDE
     Route: 048
  22. FENTANYL [Concomitant]
     Active Substance: FENTANYL
     Dosage: 50 MCG PER PATCH?1 PATCH ON SKIN EVERY 72 HOURS
  23. NORCO [Concomitant]
     Active Substance: ACETAMINOPHEN\HYDROCODONE BITARTRATE
     Indication: Pain
     Route: 048
  24. STRATTERA [Concomitant]
     Active Substance: ATOMOXETINE HYDROCHLORIDE
     Route: 048
     Dates: start: 20200708, end: 20201006
  25. PROZAC [Concomitant]
     Active Substance: FLUOXETINE HYDROCHLORIDE
     Route: 048
     Dates: start: 20200129, end: 20200801
  26. NUVIGIL [Concomitant]
     Active Substance: ARMODAFINIL
  27. AMANTADINE [Concomitant]
     Active Substance: AMANTADINE

REACTIONS (15)
  - COVID-19 pneumonia [Fatal]
  - Sepsis [Fatal]
  - Malnutrition [Fatal]
  - Breast cancer [Unknown]
  - Acute respiratory failure [Unknown]
  - Hyponatraemia [Unknown]
  - Migraine [Unknown]
  - Anxiety [Unknown]
  - Restless legs syndrome [Unknown]
  - Dysphagia [Unknown]
  - Depression [Unknown]
  - Fatigue [Unknown]
  - Vulvovaginal dryness [Unknown]
  - Pain [Unknown]
  - Headache [Unknown]

NARRATIVE: CASE EVENT DATE: 20210810
